FAERS Safety Report 15463628 (Version 4)
Quarter: 2020Q1

REPORT INFORMATION
  Report Type: Report from Study
  Country: US (occurrence: US)
  Receive Date: 20181004
  Receipt Date: 20200110
  Transmission Date: 20200409
  Serious: Yes (Hospitalization)
  Sender: FDA-Public Use
  Company Number: US-ROCHE-2193039

PATIENT
  Age: 71 Year
  Sex: Male
  Weight: 59.4 kg

DRUGS (4)
  1. CHOLESTYRAMINE. [Concomitant]
     Active Substance: CHOLESTYRAMINE
     Indication: DIARRHOEA
  2. OPIUM TINCTURE [Concomitant]
     Active Substance: MORPHINE
  3. PERTUZUMAB. [Suspect]
     Active Substance: PERTUZUMAB
     Indication: ADENOCARCINOMA OF COLON
     Route: 042
     Dates: start: 20180920, end: 20180920
  4. TRASTUZUMAB. [Suspect]
     Active Substance: TRASTUZUMAB
     Indication: ADENOCARCINOMA OF COLON
     Route: 042
     Dates: start: 20180920

REACTIONS (4)
  - Diarrhoea [Unknown]
  - Nausea [Recovering/Resolving]
  - Dehydration [Recovering/Resolving]
  - Vomiting [Recovered/Resolved]

NARRATIVE: CASE EVENT DATE: 20180926
